FAERS Safety Report 5109688-3 (Version None)
Quarter: 2006Q3

REPORT INFORMATION
  Report Type: 
  Country: None (occurrence: None)
  Receive Date: 20060920
  Receipt Date: 20060703
  Transmission Date: 20061208
  Serious: Yes (Hospitalization, Disabling)
  Sender: FDA-Public Use
  Company Number: CG-MERCK-0607USA00713

PATIENT
  Age: 47 Year
  Sex: Male

DRUGS (1)
  1. STROMECTOL [Suspect]
     Route: 048
     Dates: start: 20060518, end: 20060518

REACTIONS (9)
  - AGITATION [None]
  - ASTHENIA [None]
  - BACK PAIN [None]
  - COMA [None]
  - DIARRHOEA [None]
  - HYPERHIDROSIS [None]
  - LOGORRHOEA [None]
  - NECK PAIN [None]
  - URINARY INCONTINENCE [None]
